FAERS Safety Report 4335314-7 (Version None)
Quarter: 2004Q2

REPORT INFORMATION
  Report Type: 
  Country: None (occurrence: None)
  Receive Date: 20040408
  Receipt Date: 20040408
  Transmission Date: 20050107
  Serious: Yes (Life-Threatening)
  Sender: FDA-Public Use
  Company Number: None

PATIENT
  Sex: Female
  Weight: 95 kg

DRUGS (1)
  1. MIDAZOLAM HCL [Suspect]
     Indication: SEDATION
     Dosage: 2 MG IV X 1
     Route: 042
     Dates: start: 20040115

REACTIONS (5)
  - BLOODY DISCHARGE [None]
  - COMA [None]
  - HYPERTENSION [None]
  - HYPOXIA [None]
  - TACHYCARDIA [None]
